FAERS Safety Report 4909059-6 (Version None)
Quarter: 2006Q1

REPORT INFORMATION
  Report Type: 
  Country: None (occurrence: None)
  Receive Date: 20060213
  Receipt Date: 20060208
  Transmission Date: 20060701
  Serious: Yes (Death)
  Sender: FDA-Public Use
  Company Number: PHRM2006FR00721

PATIENT
  Age: 12 Day
  Sex: Female

DRUGS (1)
  1. NITRODERM [Suspect]
     Route: 064

REACTIONS (4)
  - DEATH [None]
  - DRUG EXPOSURE DURING PREGNANCY [None]
  - EPISTAXIS [None]
  - NEONATAL DISORDER [None]
